FAERS Safety Report 22121978 (Version 1)
Quarter: 2023Q1

REPORT INFORMATION
  Report Type: Spontaneous
  Country: US (occurrence: None)
  Receive Date: 20230321
  Receipt Date: 20230321
  Transmission Date: 20230417
  Serious: Yes (Hospitalization)
  Sender: FDA-Public Use
  Company Number: None

PATIENT
  Age: 11 Year
  Sex: Male

DRUGS (4)
  1. XOLAIR [Suspect]
     Active Substance: OMALIZUMAB
     Indication: Product used for unknown indication
     Dosage: 150 MG/ML SUBCUTANEOUS?INJECT 300 MG (2 SYRINGES) UNDER THE SKIN (SUBCUTNEOUS INJECTION) EVERY 2 WEE
     Route: 058
     Dates: start: 20220812
  2. XOLAIR [Suspect]
     Active Substance: OMALIZUMAB
     Dosage: OTHER QUANTITY : 300MG (2 SYRINGES);?FREQUENCY : EVERY OTHER WEEK;?
     Route: 058
  3. ALTERA HANDSET [Concomitant]
  4. CAYSTON [Concomitant]
     Active Substance: AZTREONAM

REACTIONS (1)
  - Adrenal insufficiency [None]

NARRATIVE: CASE EVENT DATE: 20230320
